FAERS Safety Report 10744168 (Version 2)
Quarter: 2015Q2

REPORT INFORMATION
  Report Type: Report from Study
  Country: GB (occurrence: GB)
  Receive Date: 20150128
  Receipt Date: 20150514
  Transmission Date: 20150821
  Serious: Yes (Hospitalization)
  Sender: FDA-Public Use
  Company Number: GB-ROCHE-1526345

PATIENT
  Sex: Male
  Weight: 60 kg

DRUGS (5)
  1. EPIRUBICIN [Concomitant]
     Active Substance: EPIRUBICIN
     Dosage: DATE OF MOST RECENT DOSE: 25/SEP/2013
     Route: 065
     Dates: start: 20130313
  2. LAPATINIB [Concomitant]
     Active Substance: LAPATINIB
  3. CAPECITABINE. [Concomitant]
     Active Substance: CAPECITABINE
     Dosage: DATE OF MOST RECENT DOSE: 25/SEP/2013
     Route: 065
     Dates: start: 20130313
  4. CISPLATIN. [Concomitant]
     Active Substance: CISPLATIN
     Route: 065
     Dates: start: 20130313
  5. BEVACIZUMAB [Suspect]
     Active Substance: BEVACIZUMAB
     Indication: ADENOCARCINOMA GASTRIC
     Dosage: DATE OF MOST RECENT DOSE: 25/SEP/2013
     Route: 042
     Dates: start: 20130313

REACTIONS (1)
  - Seizure [Recovered/Resolved]

NARRATIVE: CASE EVENT DATE: 20131015
